FAERS Safety Report 7113249-4 (Version None)
Quarter: 2010Q4

REPORT INFORMATION
  Report Type: 
  Country: None (occurrence: None)
  Receive Date: 20101119
  Receipt Date: 20100319
  Transmission Date: 20110411
  Serious: No
  Sender: FDA-Public Use
  Company Number: A0851155A

PATIENT
  Age: 32 Year
  Sex: Male

DRUGS (3)
  1. WELLBUTRIN SR [Suspect]
     Dosage: 200MG PER DAY
     Route: 048
     Dates: start: 20100319
  2. EFFEXOR [Concomitant]
  3. NEXIUM [Concomitant]

REACTIONS (3)
  - FATIGUE [None]
  - SEDATION [None]
  - SPEECH DISORDER [None]
